FAERS Safety Report 6675486-2 (Version None)
Quarter: 2010Q2

REPORT INFORMATION
  Report Type: 
  Country: None (occurrence: None)
  Receive Date: 20100409
  Receipt Date: 20100402
  Transmission Date: 20101027
  Serious: Yes (Hospitalization)
  Sender: FDA-Public Use
  Company Number: B0643895A

PATIENT
  Sex: Male

DRUGS (4)
  1. LAMICTAL CD [Suspect]
     Indication: EPILEPSY
     Dosage: 2MG PER DAY
     Route: 048
     Dates: start: 20090810
  2. SELENICA-R [Concomitant]
     Indication: EPILEPSY
     Dosage: 400MG PER DAY
     Route: 048
  3. UNKNOWN [Concomitant]
     Indication: EPILEPSY
     Dosage: 450MG PER DAY
     Route: 048
  4. CLONAZEPAM [Concomitant]
     Indication: EPILEPSY
     Dosage: .46MG PER DAY
     Route: 048

REACTIONS (2)
  - PYREXIA [None]
  - RASH [None]
